FAERS Safety Report 7158758-7 (Version None)
Quarter: 2010Q4

REPORT INFORMATION
  Report Type: 
  Country: None (occurrence: None)
  Receive Date: 20101214
  Receipt Date: 20101209
  Transmission Date: 20110411
  Serious: Yes (Other)
  Sender: FDA-Public Use
  Company Number: GB-PFIZER INC-2010168950

PATIENT
  Age: 40 Year
  Sex: Female
  Weight: 50 kg

DRUGS (7)
  1. TAZOCIN [Suspect]
     Indication: SEPSIS
     Dosage: 4.5 MG, UNK
     Route: 042
     Dates: start: 20101101, end: 20101121
  2. HARTMANN'S SOLUTION [Suspect]
     Indication: SEPSIS
     Dosage: 1 L, UNK
     Route: 042
     Dates: start: 20101121, end: 20101121
  3. GENTAMICIN [Concomitant]
     Indication: SEPSIS
     Dosage: 320 MG, 1X/DAY
     Route: 042
     Dates: start: 20101101
  4. METRONIDAZOLE [Concomitant]
     Indication: SEPSIS
     Dosage: 500 MG, 3X/DAY
     Route: 042
     Dates: start: 20101102
  5. TPN [Concomitant]
  6. VORICONAZOLE [Concomitant]
     Indication: SEPSIS
     Dosage: 300 MG, 2X/DAY
     Route: 042
     Dates: start: 20101104
  7. VORICONAZOLE [Concomitant]
     Indication: FUNGAL INFECTION

REACTIONS (2)
  - DRUG ERUPTION [None]
  - DRUG INTERACTION [None]
